FAERS Safety Report 22083705 (Version 1)
Quarter: 2023Q1

REPORT INFORMATION
  Report Type: Report from Study
  Country: FR (occurrence: FR)
  Receive Date: 20230310
  Receipt Date: 20230310
  Transmission Date: 20230418
  Serious: Yes (Other)
  Sender: FDA-Public Use
  Company Number: FR-ABBVIE-4238914

PATIENT
  Age: 69 Year
  Sex: Male

DRUGS (4)
  1. VENETOCLAX [Suspect]
     Active Substance: VENETOCLAX
     Indication: Mantle cell lymphoma
     Route: 048
     Dates: start: 20220301
  2. RITUXIMAB [Concomitant]
     Active Substance: RITUXIMAB
     Indication: Mantle cell lymphoma
     Dates: start: 20220201
  3. IBRUTINIB [Suspect]
     Active Substance: IBRUTINIB
     Indication: Mantle cell lymphoma
     Route: 048
     Dates: start: 20220202
  4. CD20 AB [Concomitant]
     Indication: Mantle cell lymphoma

REACTIONS (2)
  - Gingival bleeding [Recovered/Resolved]
  - Rash [Recovered/Resolved]

NARRATIVE: CASE EVENT DATE: 20220915
